FAERS Safety Report 8173985-8 (Version None)
Quarter: 2012Q1

REPORT INFORMATION
  Report Type: 
  Country: None (occurrence: None)
  Receive Date: 20120229
  Receipt Date: 20120223
  Transmission Date: 20120608
  Serious: Yes (Hospitalization)
  Sender: FDA-Public Use
  Company Number: US-B.I. PHARMACEUTICALS,INC./RIDGEFIELD-2012-BP-02354BP

PATIENT
  Sex: Male
  Weight: 104.3 kg

DRUGS (1)
  1. PRADAXA [Suspect]
     Indication: ATRIAL FIBRILLATION
     Dosage: 150 MG
     Dates: start: 20111101, end: 20120103

REACTIONS (2)
  - ARTERIAL THROMBOSIS LIMB [None]
  - PAIN IN EXTREMITY [None]
